FAERS Safety Report 9198409 (Version 1)
Quarter: 2013Q1

REPORT INFORMATION
  Report Type: Spontaneous
  Country: US (occurrence: None)
  Receive Date: 20130327
  Receipt Date: 20130327
  Transmission Date: 20140127
  Serious: No
  Sender: FDA-Public Use
  Company Number: None

PATIENT
  Age: 30 Year
  Sex: Male

DRUGS (2)
  1. VALPROIC ACID [Suspect]
     Dosage: LESS THAN 1 YEAR 750MG TWICE DAILY PO
     Route: 048
  2. VALPROIC ACID [Suspect]

REACTIONS (1)
  - Ammonia increased [None]
